FAERS Safety Report 7510299-0 (Version None)
Quarter: 2011Q2

REPORT INFORMATION
  Report Type: 
  Country: None (occurrence: None)
  Receive Date: 20110527
  Receipt Date: 20110517
  Transmission Date: 20111010
  Serious: Yes (Other)
  Sender: FDA-Public Use
  Company Number: PHHY2011US43142

PATIENT
  Age: 40 Year
  Sex: Female
  Weight: 75.5 kg

DRUGS (3)
  1. MISOPROSTOL [Concomitant]
  2. VALSARTAN [Suspect]
     Dosage: 80 MG/D
  3. ATENOLOL [Suspect]
     Dosage: 75 MG/D

REACTIONS (4)
  - DRUG EXPOSURE DURING PREGNANCY [None]
  - OLIGOHYDRAMNIOS [None]
  - PLACENTAL DISORDER [None]
  - INTRA-UTERINE DEATH [None]
